FAERS Safety Report 4564034-9 (Version None)
Quarter: 2005Q1

REPORT INFORMATION
  Report Type: 
  Country: None (occurrence: None)
  Receive Date: 20050128
  Receipt Date: 20040527
  Transmission Date: 20050727
  Serious: No
  Sender: FDA-Public Use
  Company Number: US-BRISTOL-MYERS SQUIBB COMPANY-12598249

PATIENT
  Age: 59 Year
  Sex: Female
  Weight: 54 kg

DRUGS (6)
  1. CEFZIL [Suspect]
     Indication: BRONCHITIS
     Route: 048
  2. PRINIVIL [Concomitant]
  3. ASPIRIN [Concomitant]
  4. VITAMIN C [Concomitant]
  5. LIPITOR [Concomitant]
  6. HUMALOG [Concomitant]
     Dosage: VIA PUMP
     Route: 058

REACTIONS (1)
  - BLOOD GLUCOSE INCREASED [None]
